FAERS Safety Report 18527328 (Version 2)
Quarter: 2021Q1

REPORT INFORMATION
  Report Type: Report from Study
  Country: US (occurrence: US)
  Receive Date: 20201120
  Receipt Date: 20210108
  Transmission Date: 20210419
  Serious: Yes (Death, Life-Threatening, Hospitalization, Disabling, Other)
  Sender: FDA-Public Use
  Company Number: US-ASTRAZENECA-2020SF52176

PATIENT
  Sex: Male
  Weight: 90.7 kg

DRUGS (5)
  1. TAGRISSO [Suspect]
     Active Substance: OSIMERTINIB
     Indication: LUNG NEOPLASM MALIGNANT
     Dosage: 40.0MG UNKNOWN
     Route: 048
     Dates: start: 20200510, end: 20201113
  2. TAGRISSO [Suspect]
     Active Substance: OSIMERTINIB
     Indication: NEOPLASM MALIGNANT
     Dosage: 40.0MG UNKNOWN
     Route: 048
     Dates: start: 20200510, end: 20201113
  3. TAGRISSO [Suspect]
     Active Substance: OSIMERTINIB
     Indication: HEPATIC CANCER METASTATIC
     Dosage: 40.0MG UNKNOWN
     Route: 048
     Dates: start: 20200510, end: 20201113
  4. TAGRISSO [Suspect]
     Active Substance: OSIMERTINIB
     Indication: BONE CANCER
     Dosage: 40.0MG UNKNOWN
     Route: 048
     Dates: start: 20200510, end: 20201113
  5. TAGRISSO [Suspect]
     Active Substance: OSIMERTINIB
     Indication: BRAIN CANCER METASTATIC
     Dosage: 40.0MG UNKNOWN
     Route: 048
     Dates: start: 20200510, end: 20201113

REACTIONS (5)
  - Pulmonary thrombosis [Fatal]
  - Atrial fibrillation [Fatal]
  - Urinary tract infection [Fatal]
  - Pneumonia fungal [Fatal]
  - Thrombosis [Fatal]
